FAERS Safety Report 4530272-4 (Version None)
Quarter: 2004Q4

REPORT INFORMATION
  Report Type: 
  Country: None (occurrence: None)
  Receive Date: 20041215
  Receipt Date: 20041203
  Transmission Date: 20050328
  Serious: Yes (Other)
  Sender: FDA-Public Use
  Company Number: 2004104710

PATIENT
  Sex: 0

DRUGS (3)
  1. NEURONTIN [Suspect]
     Indication: PARTIAL SEIZURES
     Dosage: ORAL
     Route: 048
  2. CARBAMAZEPINE [Concomitant]
  3. VALPROATE SODIUM [Concomitant]

REACTIONS (2)
  - GRAND MAL CONVULSION [None]
  - INCONTINENCE [None]
